FAERS Safety Report 5032666-X (Version None)
Quarter: 2006Q2

REPORT INFORMATION
  Report Type: 
  Country: None (occurrence: None)
  Receive Date: 20060620
  Receipt Date: 20060620
  Transmission Date: 20061013
  Serious: No
  Sender: FDA-Public Use
  Company Number: None

PATIENT
  Age: 79 Year
  Sex: Male

DRUGS (2)
  1. COUMADIN [Suspect]
     Dosage: 2 MG QD PO
     Route: 048
  2. LOVENOX [Suspect]
     Dosage: 30 MG QD SQ
     Route: 058

REACTIONS (9)
  - ASTHENIA [None]
  - CONTUSION [None]
  - CONVULSION [None]
  - DEPRESSED LEVEL OF CONSCIOUSNESS [None]
  - HAEMARTHROSIS [None]
  - INTERNATIONAL NORMALISED RATIO ABNORMAL [None]
  - INTERNATIONAL NORMALISED RATIO DECREASED [None]
  - PNEUMONIA [None]
  - SUBDURAL HAEMORRHAGE [None]
